FAERS Safety Report 17046899 (Version 1)
Quarter: 2019Q4

REPORT INFORMATION
  Report Type: Report from Study
  Country: DE (occurrence: DE)
  Receive Date: 20191119
  Receipt Date: 20191119
  Transmission Date: 20200122
  Serious: Yes (Hospitalization)
  Sender: FDA-Public Use
  Company Number: DE-ROCHE-2467775

PATIENT
  Age: 42 Year
  Sex: Female
  Weight: 58 kg

DRUGS (1)
  1. OCRELIZUMAB. [Suspect]
     Active Substance: OCRELIZUMAB
     Indication: MULTIPLE SCLEROSIS
     Route: 042
     Dates: start: 20190429

REACTIONS (1)
  - Thrombophlebitis [Recovered/Resolved]

NARRATIVE: CASE EVENT DATE: 20190916
